FAERS Safety Report 4688285-8 (Version None)
Quarter: 2005Q2

REPORT INFORMATION
  Report Type: 
  Country: None (occurrence: None)
  Receive Date: 20050610
  Receipt Date: 20050310
  Transmission Date: 20051028
  Serious: Yes (Hospitalization, Other)
  Sender: FDA-Public Use
  Company Number: US-MERCK-0503USA01937

PATIENT
  Age: 79 Year
  Sex: Male
  Weight: 82 kg

DRUGS (12)
  1. VIOXX [Suspect]
     Indication: ARTHRITIS
     Route: 048
     Dates: start: 20011201, end: 20031001
  2. METOPROLOL [Concomitant]
     Route: 065
  3. TRIAMTERENE [Concomitant]
     Route: 065
  4. LISINOPRIL [Concomitant]
     Route: 065
  5. MAXZIDE [Concomitant]
     Route: 065
  6. GEMFIBROZIL [Concomitant]
     Route: 065
  7. CASODEX [Concomitant]
     Route: 065
  8. PROTONIX [Concomitant]
     Route: 065
  9. HYDROCHLOROTHIAZIDE [Concomitant]
     Route: 065
  10. CARDURA [Concomitant]
     Indication: HYPERTENSION
     Route: 065
  11. TYLENOL (CAPLET) [Concomitant]
     Route: 065
  12. VITAMINS (UNSPECIFIED) [Concomitant]
     Route: 065

REACTIONS (18)
  - AMNESIA [None]
  - ANAEMIA [None]
  - ATRIAL FIBRILLATION [None]
  - BUNDLE BRANCH BLOCK LEFT [None]
  - CARDIOMEGALY [None]
  - DYSPEPSIA [None]
  - EMOTIONAL DISTRESS [None]
  - GASTRIC DISORDER [None]
  - HAEMORRHAGE INTRACRANIAL [None]
  - HAEMORRHAGIC STROKE [None]
  - HEART RATE ABNORMAL [None]
  - HERNIA [None]
  - INFECTION [None]
  - MITRAL VALVE INCOMPETENCE [None]
  - MYOCARDIAL INFARCTION [None]
  - SKIN CANCER [None]
  - TRICUSPID VALVE INCOMPETENCE [None]
  - VISUAL FIELD DEFECT [None]
